FAERS Safety Report 17045529 (Version 1)
Quarter: 2019Q4

REPORT INFORMATION
  Report Type: Other
  Country: US (occurrence: US)
  Receive Date: 20191118
  Receipt Date: 20191118
  Transmission Date: 20200122
  Serious: No
  Sender: FDA-Public Use
  Company Number: US-LEADIANT BIOSCIENCES INC-2019STPI000479

PATIENT

DRUGS (4)
  1. CYSTARAN [Suspect]
     Active Substance: CYSTEAMINE HYDROCHLORIDE
     Indication: CYSTINOSIS
     Dosage: 1 DROP, EVERY WAKING HOUR
     Route: 047
     Dates: start: 20150904
  2. MULTIVITAMINS [VITAMINS NOS] [Concomitant]
     Active Substance: VITAMINS
  3. PROGRAF [Concomitant]
     Active Substance: TACROLIMUS
  4. CYSTAGON [Concomitant]
     Active Substance: CYSTEAMINE BITARTRATE

REACTIONS (1)
  - Vision blurred [Not Recovered/Not Resolved]
